FAERS Safety Report 25836084 (Version 1)
Quarter: 2025Q3

REPORT INFORMATION
  Report Type: Spontaneous
  Country: IN (occurrence: IN)
  Receive Date: 20250923
  Receipt Date: 20250923
  Transmission Date: 20251021
  Serious: Yes (Death)
  Sender: ROCHE
  Company Number: IN-ROCHE-10000393725

PATIENT
  Age: 43 Year
  Sex: Male

DRUGS (1)
  1. TECENTRIQ [Suspect]
     Active Substance: ATEZOLIZUMAB
     Indication: Alveolar soft part sarcoma metastatic
     Route: 042
     Dates: start: 20250611

REACTIONS (1)
  - Death [Fatal]

NARRATIVE: CASE EVENT DATE: 20250919
